FAERS Safety Report 7177988-1 (Version None)
Quarter: 2010Q4

REPORT INFORMATION
  Report Type: 
  Country: None (occurrence: None)
  Receive Date: 20101220
  Receipt Date: 20101206
  Transmission Date: 20110411
  Serious: Yes (Hospitalization)
  Sender: FDA-Public Use
  Company Number: US-ACTELION-A-US2010-38829

PATIENT

DRUGS (4)
  1. BOSENTAN TABLET UNKNOWN US MG [Suspect]
     Indication: PULMONARY ARTERIAL HYPERTENSION
     Dosage: UNK
     Route: 048
     Dates: start: 20060720
  2. VENTAVIS [Suspect]
     Indication: PULMONARY ARTERIAL HYPERTENSION
     Dosage: UNK
     Route: 055
     Dates: start: 20051020, end: 20100325
  3. REVATIO [Concomitant]
  4. COUMADIN [Concomitant]

REACTIONS (6)
  - ABDOMINAL MASS [None]
  - ABDOMINAL OPERATION [None]
  - GASTRIC BYPASS [None]
  - INFECTION [None]
  - OBESITY SURGERY [None]
  - VOMITING [None]
